FAERS Safety Report 17142570 (Version 2)
Quarter: 2020Q1

REPORT INFORMATION
  Report Type: Report from Study
  Country: US (occurrence: US)
  Receive Date: 20191211
  Receipt Date: 20200113
  Transmission Date: 20200409
  Serious: Yes (Hospitalization)
  Sender: FDA-Public Use
  Company Number: US-ACTELION-A-US2019-199177

PATIENT
  Sex: Female
  Weight: 12.25 kg

DRUGS (5)
  1. VENTAVIS [Concomitant]
     Active Substance: ILOPROST
     Indication: PULMONARY ARTERIAL HYPERTENSION
  2. WARFARIN [Concomitant]
     Active Substance: WARFARIN
  3. VELETRI [Suspect]
     Active Substance: EPOPROSTENOL
     Indication: PULMONARY ARTERIAL HYPERTENSION
     Route: 042
  4. SILDENAFIL CITRATE. [Concomitant]
     Active Substance: SILDENAFIL CITRATE
  5. TRACLEER [Suspect]
     Active Substance: BOSENTAN
     Indication: PULMONARY ARTERIAL HYPERTENSION
     Dosage: 31.25 MG, BID
     Route: 048

REACTIONS (7)
  - Hydrocephalus [Unknown]
  - Condition aggravated [Unknown]
  - Syncope [Unknown]
  - Device malfunction [Unknown]
  - Ventriculo-peritoneal shunt [Unknown]
  - Cerebral haemorrhage [Unknown]
  - Pulmonary arterial hypertension [Unknown]
